FAERS Safety Report 6129773-7 (Version None)
Quarter: 2009Q1

REPORT INFORMATION
  Report Type: 
  Country: None (occurrence: None)
  Receive Date: 20090320
  Receipt Date: 20090313
  Transmission Date: 20090719
  Serious: Yes (Death, Hospitalization)
  Sender: FDA-Public Use
  Company Number: 2009JP001527

PATIENT
  Age: 55 Year
  Sex: Male

DRUGS (5)
  1. TACROLIMUS [Suspect]
     Indication: RENAL TRANSPLANT
     Dosage: D, ORAL
     Route: 048
  2. PREDNISOLONE [Suspect]
     Indication: RENAL TRANSPLANT
     Dosage: 5 MG, D, ORAL
     Route: 048
  3. MYCOPHENOLATE MOFETIL [Suspect]
     Indication: RENAL TRANSPLANT
     Dosage: ORAL
     Route: 048
  4. ANTIBIOTICS [Concomitant]
  5. GANCICLOVIR [Concomitant]

REACTIONS (9)
  - BLOOD CULTURE POSITIVE [None]
  - BRAIN ABSCESS [None]
  - CEREBRAL INFARCTION [None]
  - CYTOMEGALOVIRUS INFECTION [None]
  - HEMIPLEGIA [None]
  - LOSS OF CONSCIOUSNESS [None]
  - LUNG DISORDER [None]
  - NOCARDIOSIS [None]
  - SEPTIC EMBOLUS [None]
